FAERS Safety Report 5418182-1 (Version None)
Quarter: 2007Q3

REPORT INFORMATION
  Report Type: 
  Country: None (occurrence: None)
  Receive Date: 20070817
  Receipt Date: 20070809
  Transmission Date: 20080115
  Serious: Yes (Other)
  Sender: FDA-Public Use
  Company Number: US-ELI_LILLY_AND_COMPANY-US200708002051

PATIENT
  Age: 71 Year
  Sex: Male

DRUGS (4)
  1. HUMALOG [Suspect]
     Dosage: UNK, UNK
     Dates: start: 20061201
  2. HUMALOG [Suspect]
     Dates: start: 20061201
  3. HUMALOG [Suspect]
     Dates: start: 20061201
  4. HUMALOG [Suspect]
     Dates: start: 20061201

REACTIONS (3)
  - DEAFNESS BILATERAL [None]
  - DEVICE FAILURE [None]
  - PHARMACEUTICAL PRODUCT COMPLAINT [None]
